FAERS Safety Report 5815974-1 (Version None)
Quarter: 2008Q3

REPORT INFORMATION
  Report Type: 
  Country: None (occurrence: None)
  Receive Date: 20080716
  Receipt Date: 20070601
  Transmission Date: 20090109
  Serious: Yes (Other)
  Sender: FDA-Public Use
  Company Number: HQWYE474604JUN07

PATIENT
  Age: 30 Year
  Sex: Female

DRUGS (1)
  1. MYLOTARG [Suspect]

REACTIONS (1)
  - ACCIDENTAL EXPOSURE [None]
